FAERS Safety Report 22993428 (Version 3)
Quarter: 2023Q4

REPORT INFORMATION
  Report Type: Spontaneous
  Country: CA (occurrence: CA)
  Receive Date: 20230927
  Receipt Date: 20231108
  Transmission Date: 20240109
  Serious: Yes (Other)
  Sender: FDA-Public Use
  Company Number: CA-ABBVIE-5421745

PATIENT
  Age: 58 Year
  Sex: Female

DRUGS (31)
  1. HUMIRA [Suspect]
     Active Substance: ADALIMUMAB
     Indication: Rheumatoid arthritis
     Route: 058
     Dates: start: 201906, end: 201908
  2. ACETAMINOPHEN [Concomitant]
     Active Substance: ACETAMINOPHEN
     Indication: Product used for unknown indication
     Route: 048
     Dates: start: 20220620, end: 20220620
  3. ETANERCEPT [Suspect]
     Active Substance: ETANERCEPT
     Indication: Product used for unknown indication
     Route: 065
     Dates: start: 201902, end: 201905
  4. VITAMIN D [Concomitant]
     Active Substance: VITAMIN D NOS
     Indication: Product used for unknown indication
     Dates: start: 202204
  5. DIPHENHYDRAMINE HYDROCHLORIDE [Concomitant]
     Active Substance: DIPHENHYDRAMINE HYDROCHLORIDE
     Indication: Product used for unknown indication
     Dates: start: 20220620, end: 20220620
  6. ALEVE [Concomitant]
     Active Substance: NAPROXEN SODIUM
     Indication: Product used for unknown indication
     Dates: start: 2018
  7. BENADRYL [Suspect]
     Active Substance: DIPHENHYDRAMINE HYDROCHLORIDE
     Indication: Pruritus
     Route: 042
     Dates: start: 20220620
  8. NAPROXEN [Concomitant]
     Active Substance: NAPROXEN
     Indication: Product used for unknown indication
     Dosage: TIME INTERVAL: AS NECESSARY
     Dates: start: 202204
  9. PENICILLIN [Suspect]
     Active Substance: PENICILLIN
     Indication: Product used for unknown indication
     Route: 065
  10. REMICADE [Concomitant]
     Active Substance: INFLIXIMAB
     Indication: Rheumatoid arthritis
  11. ACTONEL [Suspect]
     Active Substance: RISEDRONATE SODIUM
     Indication: Product used for unknown indication
     Route: 048
     Dates: start: 2018
  12. RUXIENCE [Suspect]
     Active Substance: RITUXIMAB-PVVR
     Indication: Rheumatoid arthritis
     Dosage: DRUG END DATE 2022?DAY 1 AND DAY 15
     Route: 042
     Dates: start: 20220620
  13. RUXIENCE [Suspect]
     Active Substance: RITUXIMAB-PVVR
     Indication: Rheumatoid arthritis
     Dosage: DRUG END DATE 2022?DAY 1 AND DAY 15
     Route: 042
     Dates: start: 20220518
  14. RUXIENCE [Suspect]
     Active Substance: RITUXIMAB-PVVR
     Indication: Rheumatoid arthritis
     Dosage: END DATE 2022?DAY 1 AND DAY 15
     Route: 042
     Dates: start: 20220705
  15. RUXIENCE [Suspect]
     Active Substance: RITUXIMAB-PVVR
     Indication: Rheumatoid arthritis
     Dosage: DAY 1 AND DAY 15
     Route: 042
     Dates: start: 20230105, end: 20230120
  16. RUXIENCE [Suspect]
     Active Substance: RITUXIMAB-PVVR
     Indication: Rheumatoid arthritis
     Dosage: DAY 1 AND DAY 15?FIRST ADMIN DATE: 2023
     Route: 065
  17. PREDNISONE [Concomitant]
     Active Substance: PREDNISONE
     Indication: Product used for unknown indication
     Dates: start: 201902
  18. MYRBETRIQ [Concomitant]
     Active Substance: MIRABEGRON
     Indication: Product used for unknown indication
     Dates: start: 202204
  19. METHOTREXATE SODIUM [Concomitant]
     Active Substance: METHOTREXATE SODIUM
     Indication: Product used for unknown indication
  20. CODEINE [Suspect]
     Active Substance: CODEINE
     Indication: Product used for unknown indication
     Route: 065
  21. PROZAC [Suspect]
     Active Substance: FLUOXETINE HYDROCHLORIDE
     Indication: Product used for unknown indication
     Route: 065
  22. ASPIRIN [Concomitant]
     Active Substance: ASPIRIN
     Indication: Product used for unknown indication
     Route: 048
     Dates: start: 201902
  23. VENTOLIN [Concomitant]
     Active Substance: ALBUTEROL SULFATE
     Indication: Product used for unknown indication
     Route: 065
     Dates: start: 201902
  24. METHYL PREDNISOLONE ACETATE [Concomitant]
     Indication: Product used for unknown indication
     Route: 042
     Dates: start: 20220620, end: 20220620
  25. FLUOXETINE [Suspect]
     Active Substance: FLUOXETINE HYDROCHLORIDE
     Indication: Product used for unknown indication
     Route: 065
  26. ZOLOFT [Suspect]
     Active Substance: SERTRALINE HYDROCHLORIDE
     Indication: Product used for unknown indication
     Route: 065
  27. TOFACITINIB [Suspect]
     Active Substance: TOFACITINIB
     Indication: Product used for unknown indication
     Route: 065
  28. CYMBALTA [Suspect]
     Active Substance: DULOXETINE HYDROCHLORIDE
     Indication: Product used for unknown indication
     Route: 065
  29. MELOXICAM [Concomitant]
     Active Substance: MELOXICAM
     Indication: Product used for unknown indication
     Route: 065
     Dates: start: 2007
  30. MORPHINE [Suspect]
     Active Substance: MORPHINE
     Indication: Product used for unknown indication
     Route: 065
  31. LYRICA [Suspect]
     Active Substance: PREGABALIN
     Indication: Product used for unknown indication
     Route: 065

REACTIONS (25)
  - Synovitis [Unknown]
  - Restlessness [Unknown]
  - Drug hypersensitivity [Unknown]
  - Peripheral swelling [Unknown]
  - Pain [Not Recovered/Not Resolved]
  - Ectopic pregnancy [Unknown]
  - COVID-19 [Unknown]
  - Abdominal pain [Unknown]
  - Influenza [Unknown]
  - Drug ineffective [Unknown]
  - Drug intolerance [Unknown]
  - Pruritus [Unknown]
  - Maternal exposure during pregnancy [Unknown]
  - Infection [Unknown]
  - Drug hypersensitivity [Unknown]
  - Headache [Unknown]
  - Muscle twitching [Unknown]
  - Nausea [Unknown]
  - Drug ineffective [Unknown]
  - Urinary tract infection bacterial [Unknown]
  - Bone density abnormal [Unknown]
  - Periarthritis [Unknown]
  - Salpingo-oophorectomy bilateral [Unknown]
  - Rheumatoid arthritis [Unknown]
  - Hysterectomy [Unknown]

NARRATIVE: CASE EVENT DATE: 20190101
